FAERS Safety Report 7920232-5 (Version None)
Quarter: 2011Q4

REPORT INFORMATION
  Report Type: 
  Country: None (occurrence: None)
  Receive Date: 20111117
  Receipt Date: 20111117
  Transmission Date: 20120403
  Serious: Yes (Other)
  Sender: FDA-Public Use
  Company Number: US-PFIZER INC-2011191339

PATIENT
  Sex: Female
  Weight: 64 kg

DRUGS (5)
  1. CHANTIX [Suspect]
     Dosage: 0.5 MG, 1X/DAY
     Dates: start: 20101101, end: 20110601
  2. CELEBREX [Suspect]
     Indication: ARTHRITIS
     Dosage: (100 MG OR 200 MG) ONCE DAILY
     Dates: start: 20050101, end: 20110601
  3. PREMARIN [Concomitant]
     Dosage: 0.3 MG, UNK
  4. CHANTIX [Suspect]
     Indication: SMOKING CESSATION THERAPY
     Dosage: UNK
  5. STRATTERA [Concomitant]
     Dosage: 40 MG

REACTIONS (3)
  - AGITATION [None]
  - RASH GENERALISED [None]
  - HYPERSENSITIVITY [None]
